FAERS Safety Report 5595604-7 (Version None)
Quarter: 2008Q1

REPORT INFORMATION
  Report Type: 
  Country: None (occurrence: None)
  Receive Date: 20080116
  Receipt Date: 20080116
  Transmission Date: 20080703
  Serious: Yes (Hospitalization)
  Sender: FDA-Public Use
  Company Number: None

PATIENT
  Sex: Female
  Weight: 82.1 kg

DRUGS (2)
  1. FLUOROURACIL [Suspect]
     Dosage: 8000 MG
  2. MITOMYCIN [Suspect]
     Dosage: 20 MG

REACTIONS (1)
  - DYSPHAGIA [None]
